FAERS Safety Report 8313897-X (Version None)
Quarter: 2012Q2

REPORT INFORMATION
  Report Type: 
  Country: None (occurrence: None)
  Receive Date: 20120426
  Receipt Date: 20120426
  Transmission Date: 20120825
  Serious: No
  Sender: FDA-Public Use
  Company Number: None

PATIENT
  Age: 56 Year
  Sex: Male
  Weight: 97.068 kg

DRUGS (2)
  1. LAMICTAL XR [Concomitant]
  2. LAMICTAL XR [Suspect]
     Indication: CONVULSION
     Dosage: 25MG UP TO 100MG
     Dates: start: 20120316, end: 20120425

REACTIONS (2)
  - DYSPNOEA [None]
  - CONVULSION [None]
